FAERS Safety Report 9905336 (Version 1)
Quarter: 2014Q1

REPORT INFORMATION
  Report Type: Spontaneous
  Country: US (occurrence: None)
  Receive Date: 20140211
  Receipt Date: 20140211
  Transmission Date: 20141002
  Serious: Yes (Other)
  Sender: FDA-Public Use
  Company Number: 2014P1000839

PATIENT
  Sex: 0

DRUGS (1)
  1. MITOMYCIN [Suspect]
     Dosage: ; IO
     Route: 031

REACTIONS (4)
  - Iris atrophy [None]
  - Corneal oedema [None]
  - Cystoid macular oedema [None]
  - Visual field defect [None]
